FAERS Safety Report 7019844-5 (Version None)
Quarter: 2010Q3

REPORT INFORMATION
  Report Type: 
  Country: None (occurrence: None)
  Receive Date: 20100922
  Receipt Date: 20100913
  Transmission Date: 20110219
  Serious: Yes (Hospitalization, Other)
  Sender: FDA-Public Use
  Company Number: 002463

PATIENT
  Sex: Male

DRUGS (2)
  1. VIMPAT [Suspect]
     Indication: EPILEPSY
     Dosage: 50 MG QD ORAL; 150 MG BID, 3X50 MG TWICE DAILY ORAL
     Route: 048
     Dates: start: 20090810, end: 20090821
  2. VIMPAT [Suspect]
     Indication: EPILEPSY
     Dosage: 50 MG QD ORAL; 150 MG BID, 3X50 MG TWICE DAILY ORAL
     Route: 048
     Dates: start: 20090626

REACTIONS (12)
  - ANXIETY [None]
  - ATRIAL FIBRILLATION [None]
  - ATRIAL FLUTTER [None]
  - BLOOD PRESSURE DECREASED [None]
  - CARDIAC DISORDER [None]
  - DIZZINESS [None]
  - EPILEPSY [None]
  - FALL [None]
  - FATIGUE [None]
  - GAIT DISTURBANCE [None]
  - HEART RATE INCREASED [None]
  - MALAISE [None]
